FAERS Safety Report 5000209-2 (Version None)
Quarter: 2006Q2

REPORT INFORMATION
  Report Type: 
  Country: None (occurrence: None)
  Receive Date: 20060511
  Receipt Date: 20060503
  Transmission Date: 20061013
  Serious: Yes (Other)
  Sender: FDA-Public Use
  Company Number: CH-ABBOTT-06P-151-0332298-00

PATIENT
  Age: 37 Year
  Sex: Female

DRUGS (4)
  1. KLACID ONE [Suspect]
     Indication: EAR INFECTION
     Dates: start: 20060401, end: 20060430
  2. KLACID ONE [Suspect]
  3. FEMODENE [Concomitant]
     Indication: CONTRACEPTION
  4. FEMODENE [Concomitant]

REACTIONS (5)
  - ASTHENIA [None]
  - HENOCH-SCHONLEIN PURPURA [None]
  - HYPOKINESIA [None]
  - MYALGIA [None]
  - PRURITUS [None]
